FAERS Safety Report 8168278-9 (Version None)
Quarter: 2012Q1

REPORT INFORMATION
  Report Type: 
  Country: None (occurrence: None)
  Receive Date: 20120227
  Receipt Date: 20120223
  Transmission Date: 20120608
  Serious: No
  Sender: FDA-Public Use
  Company Number: US-PFIZER INC-2005133724

PATIENT
  Age: 2 Year
  Sex: Female
  Weight: 11.3 kg

DRUGS (2)
  1. BENADRYL [Suspect]
     Indication: URTICARIA
     Dosage: 1 TEASPOON ONCE
     Route: 048
     Dates: start: 20050926, end: 20050926
  2. IBUPROFEN [Suspect]
     Indication: URTICARIA
     Dosage: UNK
     Route: 048
     Dates: start: 20050926

REACTIONS (1)
  - INSOMNIA [None]
